FAERS Safety Report 9503038 (Version 1)
Quarter: 2013Q1

REPORT INFORMATION
  Report Type: Spontaneous
  Country: US (occurrence: None)
  Receive Date: 20130107
  Receipt Date: 20130107
  Transmission Date: 20140127
  Serious: No
  Sender: FDA-Public Use
  Company Number: PHEH2012US020344

PATIENT
  Age: 39 Year
  Sex: Male

DRUGS (3)
  1. GILENYA [Suspect]
     Indication: MULTIPLE SCLEROSIS
     Route: 048
     Dates: start: 20120813
  2. BACLOFEN [Concomitant]
  3. PERCOCET [Concomitant]

REACTIONS (2)
  - Night sweats [None]
  - Condition aggravated [None]
